FAERS Safety Report 24684836 (Version 1)
Quarter: 2024Q4

REPORT INFORMATION
  Report Type: Other
  Country: ES (occurrence: ES)
  Receive Date: 20241202
  Receipt Date: 20241202
  Transmission Date: 20250115
  Serious: Yes (Other)
  Sender: ZYDUS PHARM
  Company Number: None

PATIENT

DRUGS (2)
  1. ARIPIPRAZOLE [Suspect]
     Active Substance: ARIPIPRAZOLE
     Indication: Product used for unknown indication
     Dosage: 10 MILLIGRAM
     Route: 048
     Dates: start: 2017
  2. ABILIFY MAINTENA [Suspect]
     Active Substance: ARIPIPRAZOLE
     Indication: Product used for unknown indication
     Dosage: 300 MILLIGRAM, PRESCRIBED UNDERDOSE
     Route: 065
     Dates: start: 2017

REACTIONS (7)
  - Disorientation [Unknown]
  - Psychomotor retardation [Unknown]
  - Depressed level of consciousness [Unknown]
  - Mental disorder [Unknown]
  - Parkinsonian gait [Unknown]
  - Muscle rigidity [Unknown]
  - Prescribed underdose [Unknown]
